FAERS Safety Report 14621436 (Version 1)
Quarter: 2018Q1

REPORT INFORMATION
  Report Type: Spontaneous
  Country: GB (occurrence: GB)
  Receive Date: 20180310
  Receipt Date: 20180310
  Transmission Date: 20180509
  Serious: Yes (Hospitalization)
  Sender: FDA-Public Use
  Company Number: GB-AUROBINDO-AUR-APL-2018-012202

PATIENT
  Age: 40 Year
  Sex: Male
  Weight: 133 kg

DRUGS (5)
  1. RISPERIDONE. [Concomitant]
     Active Substance: RISPERIDONE
     Dosage: ()
     Route: 065
  2. SULPIRIDE [Concomitant]
     Active Substance: SULPIRIDE
     Dosage: ()
     Route: 065
  3. ARIPIPRAZOLE. [Suspect]
     Active Substance: ARIPIPRAZOLE
     Indication: PRODUCT USED FOR UNKNOWN INDICATION
     Dosage: ()
     Route: 048
  4. CLOZAPINE. [Suspect]
     Active Substance: CLOZAPINE
     Dosage: ()
     Route: 065
  5. CLOZAPINE. [Suspect]
     Active Substance: CLOZAPINE
     Indication: SCHIZOPHRENIA
     Dosage: ()
     Route: 065

REACTIONS (4)
  - Weight decreased [Unknown]
  - Abnormal behaviour [Not Recovered/Not Resolved]
  - Genital pain [Recovered/Resolved]
  - Insomnia [Unknown]
